FAERS Safety Report 12308229 (Version 2)
Quarter: 2016Q2

REPORT INFORMATION
  Report Type: Spontaneous
  Country: FR (occurrence: FR)
  Receive Date: 20160426
  Receipt Date: 20160502
  Transmission Date: 20160815
  Serious: Yes (Hospitalization, Other)
  Sender: FDA-Public Use
  Company Number: FR-ASTRAZENECA-2016SE43881

PATIENT
  Age: 58 Year
  Sex: Female

DRUGS (14)
  1. AMOXICILLIN. [Suspect]
     Active Substance: AMOXICILLIN
     Indication: PYREXIA
     Dosage: NON AZ PRODUCT
     Route: 048
     Dates: start: 20160303, end: 20160308
  2. LIPANTHYL [Concomitant]
     Active Substance: FENOFIBRATE
  3. INEXIUM [Suspect]
     Active Substance: ESOMEPRAZOLE
     Route: 048
     Dates: start: 20160215, end: 20160321
  4. REVLIMID [Suspect]
     Active Substance: LENALIDOMIDE
     Indication: PLASMA CELL MYELOMA
     Route: 048
     Dates: start: 20160215, end: 20160319
  5. TAREG [Concomitant]
     Active Substance: VALSARTAN
  6. STAGID [Concomitant]
     Active Substance: METFORMIN PAMOATE
  7. ZOVIRAX [Suspect]
     Active Substance: ACYCLOVIR
     Indication: PROPHYLAXIS
     Route: 048
     Dates: start: 20160215, end: 20160321
  8. STILNOX [Concomitant]
     Active Substance: ZOLPIDEM TARTRATE
  9. VELCADE [Suspect]
     Active Substance: BORTEZOMIB
     Indication: PLASMA CELL MYELOMA
     Route: 042
     Dates: start: 20160215, end: 20160317
  10. CLASTOBAN [Suspect]
     Active Substance: CLODRONIC ACID
     Route: 048
     Dates: start: 20160215, end: 20160321
  11. ASPIRINE [Suspect]
     Active Substance: ASPIRIN
     Route: 048
     Dates: start: 20160215, end: 20160321
  12. BACTRIM [Suspect]
     Active Substance: SULFAMETHOXAZOLE\TRIMETHOPRIM
     Route: 048
     Dates: start: 20160215, end: 20160321
  13. DEXAMETHASONE. [Suspect]
     Active Substance: DEXAMETHASONE
     Indication: PLASMA CELL MYELOMA
     Route: 042
     Dates: start: 20160215, end: 20160317
  14. JANUVIA [Concomitant]
     Active Substance: SITAGLIPTIN PHOSPHATE

REACTIONS (3)
  - Sepsis [Unknown]
  - Drug reaction with eosinophilia and systemic symptoms [Recovered/Resolved]
  - Urinary tract infection [Unknown]

NARRATIVE: CASE EVENT DATE: 20160321
